FAERS Safety Report 10195261 (Version 1)
Quarter: 2014Q2

REPORT INFORMATION
  Report Type: Spontaneous
  Country: CH (occurrence: CH)
  Receive Date: 20140526
  Receipt Date: 20140526
  Transmission Date: 20141212
  Serious: Yes (Hospitalization)
  Sender: FDA-Public Use
  Company Number: CH-BRISTOL-MYERS SQUIBB COMPANY-20788253

PATIENT
  Age: 71 Year
  Sex: Female
  Weight: 79.3 kg

DRUGS (15)
  1. ONGLYZA TABS 5 MG [Suspect]
     Dosage: FLIM COATED TABS
     Route: 048
  2. METFIN [Suspect]
     Dosage: FLIM COATED TABS
     Route: 048
     Dates: end: 20140403
  3. NOVOMIX [Suspect]
     Dosage: 30%70 PRE FILLED SYRINGES PENS
     Route: 058
  4. ATENOLOL [Concomitant]
     Route: 048
  5. CADUET [Concomitant]
     Dosage: 1 DF=1 UNIT NOS
     Route: 048
     Dates: start: 20140403
  6. DANCOR [Concomitant]
     Dosage: TABS
     Route: 048
  7. MODURETIC [Concomitant]
     Dosage: 2.5 MG
     Route: 048
     Dates: start: 20140403
  8. QUETIAPINE [Concomitant]
  9. QUETIAPINE [Concomitant]
     Route: 048
  10. TOLTERODINE [Concomitant]
     Route: 048
  11. ASPIRIN [Concomitant]
     Route: 048
  12. PANTOPRAZOLE [Concomitant]
     Route: 048
  13. ATARAX [Concomitant]
     Route: 048
  14. PAROXETINE [Concomitant]
  15. LYRICA [Concomitant]
     Dosage: CAPS
     Route: 048

REACTIONS (3)
  - Hypoglycaemia [Recovered/Resolved]
  - Malaise [Recovered/Resolved]
  - Fall [Recovered/Resolved]
